FAERS Safety Report 7285300 (Version 5)
Quarter: 2012Q4

REPORT INFORMATION
  Report Type: 
  Country: FR (occurrence: FR)
  Receive Date: 20100219
  Receipt Date: 20121218
  Transmission Date: 20130627
  Serious: Yes (Other)
  Sender: FDA-Public Use
  Company Number: PHRM2007FR01109

PATIENT
  Age: 76 None
  Sex: Male

DRUGS (5)
  1. TAREG [Suspect]
     Dosage: 80 mg, QD
     Route: 048
     Dates: start: 2004, end: 200612
  2. TAREG [Suspect]
     Dosage: 40 mg, QD
     Route: 048
     Dates: start: 2004
  3. DISCOTRINE [Concomitant]
  4. ELISOR [Concomitant]
     Dates: end: 2006
  5. ASPEGIC [Concomitant]

REACTIONS (33)
  - Polymyalgia rheumatica [Not Recovered/Not Resolved]
  - Back pain [Not Recovered/Not Resolved]
  - Kyphosis [Not Recovered/Not Resolved]
  - Lordosis [Not Recovered/Not Resolved]
  - Musculoskeletal stiffness [Not Recovered/Not Resolved]
  - Activities of daily living impaired [Not Recovered/Not Resolved]
  - Gait disturbance [Not Recovered/Not Resolved]
  - Myalgia [Recovered/Resolved]
  - Fall [Unknown]
  - Eye disorder [Unknown]
  - Visual impairment [Unknown]
  - Rotator cuff syndrome [Unknown]
  - Osteoarthritis [Unknown]
  - Meniscus injury [Unknown]
  - Pain in extremity [Unknown]
  - Deafness [Recovered/Resolved]
  - Hypoacusis [Unknown]
  - Rhabdomyolysis [Unknown]
  - Muscle atrophy [Unknown]
  - Condition aggravated [Recovering/Resolving]
  - Tendonitis [Unknown]
  - Fatigue [Unknown]
  - Insomnia [Unknown]
  - Arthralgia [Unknown]
  - Malaise [Unknown]
  - Tinnitus [Unknown]
  - QRS axis abnormal [Unknown]
  - Tendon calcification [Unknown]
  - Incorrect dose administered [Unknown]
  - Muscle spasms [Unknown]
  - Libido decreased [Recovering/Resolving]
  - Haematospermia [Recovering/Resolving]
  - Musculoskeletal pain [Recovering/Resolving]
